FAERS Safety Report 9226416 (Version 3)
Quarter: 2013Q4

REPORT INFORMATION
  Report Type: Spontaneous
  Country: US (occurrence: US)
  Receive Date: 20130411
  Receipt Date: 20131112
  Transmission Date: 20140711
  Serious: Yes (Hospitalization)
  Sender: FDA-Public Use
  Company Number: US-UCBSA-082732

PATIENT
  Age: 64 Year
  Sex: Female
  Weight: 68 kg

DRUGS (1)
  1. CIMZIA [Suspect]
     Indication: CROHN^S DISEASE
     Dosage: EXP DATE: DEC-2015
     Dates: start: 20130102

REACTIONS (2)
  - Arthropod bite [Not Recovered/Not Resolved]
  - Sinusitis [Not Recovered/Not Resolved]
